FAERS Safety Report 14003728 (Version 1)
Quarter: 2017Q3

REPORT INFORMATION
  Report Type: Spontaneous
  Country: US (occurrence: US)
  Receive Date: 20170922
  Receipt Date: 20170922
  Transmission Date: 20171128
  Serious: No
  Sender: FDA-Public Use
  Company Number: US-JNJFOC-20170713161

PATIENT
  Sex: Male

DRUGS (2)
  1. DURAGESIC [Suspect]
     Active Substance: FENTANYL
     Indication: GUILLAIN-BARRE SYNDROME
     Route: 062
     Dates: start: 2005
  2. DURAGESIC [Suspect]
     Active Substance: FENTANYL
     Indication: GUILLAIN-BARRE SYNDROME
     Dosage: DOSE DECREASED
     Route: 062

REACTIONS (8)
  - Incorrect dose administered [Unknown]
  - Off label use [Unknown]
  - Dermatitis contact [Unknown]
  - Product quality issue [Unknown]
  - Product adhesion issue [Unknown]
  - Hyperhidrosis [Unknown]
  - Wrong technique in product usage process [Unknown]
  - Underdose [Unknown]
